FAERS Safety Report 8471689-5 (Version None)
Quarter: 2012Q2

REPORT INFORMATION
  Report Type: 
  Country: None (occurrence: None)
  Receive Date: 20120627
  Receipt Date: 20120607
  Transmission Date: 20120825
  Serious: Yes (Other)
  Sender: FDA-Public Use
  Company Number: CA-GLAXOSMITHKLINE-A0980493A

PATIENT
  Sex: Female
  Weight: 54.5 kg

DRUGS (4)
  1. ALBUTEROL [Suspect]
     Indication: SPIROMETRY
     Dosage: 200MCG SEE DOSAGE TEXT
     Route: 055
     Dates: start: 20120607, end: 20120607
  2. ALBUTEROL [Concomitant]
     Indication: ASTHMA
     Dosage: 2PUFF AS REQUIRED
     Route: 055
  3. VARENICLINE TARTRATE [Concomitant]
     Indication: EX-TOBACCO USER
     Route: 048
     Dates: start: 20120602
  4. ADVAIR DISKUS 100/50 [Concomitant]
     Indication: ASTHMA
     Dosage: 1PUFF TWICE PER DAY
     Route: 055

REACTIONS (3)
  - CONDITION AGGRAVATED [None]
  - FORCED EXPIRATORY VOLUME DECREASED [None]
  - SPIROMETRY ABNORMAL [None]
